FAERS Safety Report 10577216 (Version 2)
Quarter: 2014Q4

REPORT INFORMATION
  Report Type: Spontaneous
  Country: US (occurrence: US)
  Receive Date: 20141111
  Receipt Date: 20141111
  Transmission Date: 20150529
  Serious: Yes (Other)
  Sender: FDA-Public Use
  Company Number: US-ABBVIE-14K-163-1297744-00

PATIENT
  Sex: Male
  Weight: 102.15 kg

DRUGS (3)
  1. HUMIRA [Suspect]
     Active Substance: ADALIMUMAB
     Indication: PSORIASIS
     Route: 065
     Dates: start: 20140623, end: 20140623
  2. HUMIRA [Suspect]
     Active Substance: ADALIMUMAB
     Route: 065
     Dates: start: 20140630, end: 201408
  3. HUMIRA [Suspect]
     Active Substance: ADALIMUMAB
     Route: 065
     Dates: start: 20141015

REACTIONS (6)
  - Inguinal hernia [Unknown]
  - Chest pain [Unknown]
  - Back pain [Unknown]
  - Liver disorder [Unknown]
  - Psoriasis [Unknown]
  - Cellulitis [Unknown]

NARRATIVE: CASE EVENT DATE: 2014
